FAERS Safety Report 19274683 (Version 1)
Quarter: 2021Q2

REPORT INFORMATION
  Report Type: Spontaneous
  Country: US (occurrence: US)
  Receive Date: 20210519
  Receipt Date: 20210519
  Transmission Date: 20210717
  Serious: No
  Sender: FDA-Public Use
  Company Number: US-BAYER-2021-142835

PATIENT
  Sex: Female

DRUGS (2)
  1. MIRALAX [Suspect]
     Active Substance: POLYETHYLENE GLYCOL 3350
     Dosage: CAP FILLED TO LINE
     Dates: start: 2021
  2. MIRALAX [Suspect]
     Active Substance: POLYETHYLENE GLYCOL 3350
     Dosage: HALF OF DOSE
     Route: 048
     Dates: start: 20210516

REACTIONS (3)
  - Abdominal discomfort [None]
  - Frequent bowel movements [None]
  - Incorrect dose administered [None]

NARRATIVE: CASE EVENT DATE: 2021
